FAERS Safety Report 12573386 (Version 1)
Quarter: 2016Q3

REPORT INFORMATION
  Report Type: Spontaneous
  Country: US (occurrence: None)
  Receive Date: 20160719
  Receipt Date: 20160719
  Transmission Date: 20161109
  Serious: No
  Sender: FDA-Public Use
  Company Number: None

PATIENT
  Age: 49 Year
  Sex: Female
  Weight: 68.04 kg

DRUGS (9)
  1. MIRALAX [Concomitant]
     Active Substance: POLYETHYLENE GLYCOL 3350
  2. APAP [Concomitant]
     Active Substance: ACETAMINOPHEN
  3. PROAIR HFA [Concomitant]
     Active Substance: ALBUTEROL SULFATE
  4. QVAR [Concomitant]
     Active Substance: BECLOMETHASONE DIPROPIONATE
  5. BUDESONIDE. [Concomitant]
     Active Substance: BUDESONIDE
  6. LAMICTAL [Concomitant]
     Active Substance: LAMOTRIGINE
  7. CLONAZEPAM. [Concomitant]
     Active Substance: CLONAZEPAM
  8. FEXOFENADINE 180MG, 180 MG [Suspect]
     Active Substance: FEXOFENADINE HYDROCHLORIDE
     Indication: EAR DISCOMFORT
     Route: 048
     Dates: start: 20160622, end: 20160714
  9. OMEPRAZOLE. [Concomitant]
     Active Substance: OMEPRAZOLE

REACTIONS (5)
  - Vision blurred [None]
  - Dizziness [None]
  - Gait disturbance [None]
  - Somnolence [None]
  - Tremor [None]

NARRATIVE: CASE EVENT DATE: 20160714
